FAERS Safety Report 26167000 (Version 1)
Quarter: 2025Q4

REPORT INFORMATION
  Report Type: Spontaneous
  Country: US (occurrence: US)
  Receive Date: 20251217
  Receipt Date: 20251217
  Transmission Date: 20260117
  Serious: No
  Sender: BIOVITRUM
  Company Number: US-BIOVITRUM-2025-US-017403

PATIENT
  Age: 73 Year
  Sex: Female

DRUGS (2)
  1. PACRITINIB [Suspect]
     Active Substance: PACRITINIB
     Indication: Myeloproliferative neoplasm
     Dosage: TWICE DAILY (DURATION OF PACRITINIB: 5 MONTHS)
  2. PACRITINIB [Suspect]
     Active Substance: PACRITINIB
     Indication: Myelodysplastic syndrome

REACTIONS (2)
  - Off label use [Recovered/Resolved]
  - Fatigue [Not Recovered/Not Resolved]
